FAERS Safety Report 4368254-8 (Version None)
Quarter: 2004Q2

REPORT INFORMATION
  Report Type: 
  Country: None (occurrence: None)
  Receive Date: 20040527
  Receipt Date: 20040510
  Transmission Date: 20050107
  Serious: Yes (Death, Hospitalization)
  Sender: FDA-Public Use
  Company Number: F01200401003

PATIENT
  Age: 48 Year
  Sex: Female

DRUGS (6)
  1. OXALIPLATIN [Suspect]
     Indication: HEPATIC NEOPLASM MALIGNANT
     Route: 042
     Dates: start: 20040413, end: 20040413
  2. CAPECITABINE [Suspect]
     Dosage: 500 MG
     Route: 048
     Dates: start: 20040413
  3. LIPIODOL - (IODIZED OIL) [Suspect]
  4. DEPAKOTE [Concomitant]
  5. PROPRANOLOL [Concomitant]
  6. TYLEX [Concomitant]

REACTIONS (19)
  - ALANINE AMINOTRANSFERASE INCREASED [None]
  - ASPARTATE AMINOTRANSFERASE INCREASED [None]
  - BRAIN DEATH [None]
  - CATHETER SITE HAEMORRHAGE [None]
  - COAGULOPATHY [None]
  - CONJUNCTIVAL HAEMORRHAGE [None]
  - EPISTAXIS [None]
  - HAEMODIALYSIS [None]
  - LIVER FUNCTION TEST ABNORMAL [None]
  - LOSS OF CONSCIOUSNESS [None]
  - MENINGORRHAGIA [None]
  - METABOLIC ACIDOSIS [None]
  - MOUTH HAEMORRHAGE [None]
  - NERVOUS SYSTEM DISORDER [None]
  - OLIGURIA [None]
  - PERITONEAL DIALYSIS [None]
  - PROTHROMBIN TIME PROLONGED [None]
  - RENAL FAILURE [None]
  - THROMBOCYTOPENIA [None]
